FAERS Safety Report 6618125-9 (Version None)
Quarter: 2010Q1

REPORT INFORMATION
  Report Type: 
  Country: None (occurrence: None)
  Receive Date: 20100308
  Receipt Date: 20100226
  Transmission Date: 20100710
  Serious: Yes (Other)
  Sender: FDA-Public Use
  Company Number: US-GENZYME-CERZ-1001197

PATIENT
  Sex: Female
  Weight: 84 kg

DRUGS (1)
  1. CEREZYME [Suspect]
     Indication: GAUCHER'S DISEASE
     Dosage: 3000 U, Q2W
     Route: 042
     Dates: start: 19990101

REACTIONS (1)
  - PARKINSON'S DISEASE [None]
